FAERS Safety Report 4827662-9 (Version None)
Quarter: 2005Q4

REPORT INFORMATION
  Report Type: 
  Country: None (occurrence: None)
  Receive Date: 20051110
  Receipt Date: 20051025
  Transmission Date: 20060501
  Serious: Yes (Life-Threatening, Hospitalization)
  Sender: FDA-Public Use
  Company Number: 2005VX000591

PATIENT
  Age: 63 Year
  Sex: Female

DRUGS (5)
  1. MESTINON [Suspect]
     Dosage: 60 MG; ORAL
     Route: 048
     Dates: start: 20040201, end: 20050211
  2. PREDNISONE [Concomitant]
  3. AZATHIOPRINE [Concomitant]
  4. PRAVASTATIN SODIUM [Concomitant]
  5. ALFUZOSIN HYDROCHLORIDE [Concomitant]

REACTIONS (3)
  - ATRIOVENTRICULAR BLOCK COMPLETE [None]
  - ATRIOVENTRICULAR BLOCK SECOND DEGREE [None]
  - SYNCOPE [None]
